FAERS Safety Report 25549215 (Version 1)
Quarter: 2025Q3

REPORT INFORMATION
  Report Type: Spontaneous
  Country: US (occurrence: US)
  Receive Date: 20250714
  Receipt Date: 20250714
  Transmission Date: 20251021
  Serious: No
  Sender: ASTELLAS
  Company Number: US-ASTELLAS-2024-AER-023569

PATIENT
  Age: 81 Year
  Sex: Male

DRUGS (2)
  1. MYRBETRIQ [Suspect]
     Active Substance: MIRABEGRON
     Indication: Pollakiuria
     Dosage: AT 3 PM
     Route: 065
     Dates: start: 20241204, end: 20241204
  2. MYRBETRIQ [Suspect]
     Active Substance: MIRABEGRON
     Dosage: AT 6 PM
     Route: 065
     Dates: start: 20241126, end: 20241203

REACTIONS (1)
  - Insomnia [Unknown]

NARRATIVE: CASE EVENT DATE: 20241205
